FAERS Safety Report 5578805-3 (Version None)
Quarter: 2007Q4

REPORT INFORMATION
  Report Type: 
  Country: None (occurrence: None)
  Receive Date: 20071228
  Receipt Date: 20071228
  Transmission Date: 20080405
  Serious: Yes (Hospitalization)
  Sender: FDA-Public Use
  Company Number: None

PATIENT
  Age: 83 Year
  Sex: Male

DRUGS (1)
  1. METOPROLOL TARTRATE [Suspect]
     Dosage: 100MG EVERY DAY PO
     Route: 048
     Dates: start: 20071201

REACTIONS (3)
  - BRADYCARDIA [None]
  - DRUG INTERACTION [None]
  - UNEVALUABLE EVENT [None]
